FAERS Safety Report 4925185-X (Version None)
Quarter: 2006Q1

REPORT INFORMATION
  Report Type: 
  Country: None (occurrence: None)
  Receive Date: 20060228
  Receipt Date: 20060112
  Transmission Date: 20060701
  Serious: No
  Sender: FDA-Public Use
  Company Number: US-GLAXOSMITHKLINE-A0589027A

PATIENT
  Age: 61 Year
  Sex: Male

DRUGS (2)
  1. AVODART [Suspect]
     Indication: BENIGN PROSTATIC HYPERPLASIA
     Dosage: 1CAP PER DAY
     Route: 048
     Dates: start: 20051220
  2. UNKNOWN MEDICATION [Concomitant]
     Route: 065

REACTIONS (2)
  - TESTICULAR PAIN [None]
  - TESTICULAR SWELLING [None]
